FAERS Safety Report 15167182 (Version 1)
Quarter: 2018Q3

REPORT INFORMATION
  Report Type: Spontaneous
  Country: US (occurrence: US)
  Receive Date: 20180621
  Receipt Date: 20180621
  Transmission Date: 20181010
  Serious: Yes (Other)
  Sender: FDA-Public Use
  Company Number: None

PATIENT
  Age: 56 Year
  Sex: Female
  Weight: 65.25 kg

DRUGS (7)
  1. MULTI [Concomitant]
  2. ALCAINE [Suspect]
     Active Substance: PROPARACAINE HYDROCHLORIDE
     Indication: LOCAL ANAESTHESIA
     Route: 047
     Dates: start: 20180619, end: 20180619
  3. CYTOMEL [Concomitant]
     Active Substance: LIOTHYRONINE SODIUM
  4. ESTRIADOL [Concomitant]
     Active Substance: ESTRADIOL
  5. PROGESTERONE. [Concomitant]
     Active Substance: PROGESTERONE
  6. VITAMIN D [Concomitant]
     Active Substance: CHOLECALCIFEROL
  7. B12 B6 [Concomitant]

REACTIONS (5)
  - Eye pain [None]
  - Vision blurred [None]
  - Hypersensitivity [None]
  - Ocular hyperaemia [None]
  - Eye swelling [None]

NARRATIVE: CASE EVENT DATE: 20180619
